FAERS Safety Report 11439961 (Version 1)
Quarter: 2015Q3

REPORT INFORMATION
  Report Type: Spontaneous
  Country: US (occurrence: US)
  Receive Date: 20150901
  Receipt Date: 20150901
  Transmission Date: 20151125
  Serious: No
  Sender: FDA-Public Use
  Company Number: US-ROCHE-1082330

PATIENT
  Sex: Male

DRUGS (2)
  1. PEGASYS [Suspect]
     Active Substance: PEGINTERFERON ALFA-2A
     Indication: CHRONIC HEPATITIS C
     Route: 058
     Dates: start: 20120626
  2. COPEGUS [Suspect]
     Active Substance: RIBAVIRIN
     Indication: CHRONIC HEPATITIS C
     Dosage: DIVIDED DOSES
     Route: 065
     Dates: start: 20120625

REACTIONS (17)
  - Chills [Unknown]
  - Dizziness [Unknown]
  - Pain in extremity [Unknown]
  - Crying [Unknown]
  - Malaise [Unknown]
  - Arthralgia [Unknown]
  - Pyrexia [Unknown]
  - Chest pain [Unknown]
  - Depressed mood [Unknown]
  - Unevaluable event [Unknown]
  - Back pain [Unknown]
  - Pain [Unknown]
  - Body temperature increased [Unknown]
  - Skin ulcer [Unknown]
  - Headache [Unknown]
  - Abasia [Unknown]
  - Emotional disorder [Unknown]
